FAERS Safety Report 9425511 (Version 1)
Quarter: 2013Q3

REPORT INFORMATION
  Report Type: Spontaneous
  Country: US (occurrence: US)
  Receive Date: 20130729
  Receipt Date: 20130729
  Transmission Date: 20140515
  Serious: No
  Sender: FDA-Public Use
  Company Number: US-MYLANLABS-2012S1012361

PATIENT
  Age: 69 Year
  Sex: Male

DRUGS (5)
  1. LEVOTHYROXINE SODIUM TABLETS, USP [Suspect]
     Indication: HYPOTHYROIDISM
     Route: 048
  2. METFORMIN [Suspect]
     Indication: DIABETES MELLITUS
  3. ALLOPURINOL [Suspect]
     Indication: GOUT
  4. LOVASTATIN [Suspect]
     Indication: BLOOD CHOLESTEROL
  5. AMLODIPINE [Suspect]
     Indication: BLOOD PRESSURE

REACTIONS (1)
  - Loss of consciousness [Recovered/Resolved]
